FAERS Safety Report 7027230-7 (Version None)
Quarter: 2010Q4

REPORT INFORMATION
  Report Type: 
  Country: None (occurrence: None)
  Receive Date: 20101001
  Receipt Date: 20101001
  Transmission Date: 20110411
  Serious: Yes (Other)
  Sender: FDA-Public Use
  Company Number: None

PATIENT
  Age: 33 Year
  Sex: Female
  Weight: 65.7716 kg

DRUGS (1)
  1. MONISTAT 3 [Suspect]
     Indication: FUNGAL INFECTION
     Dosage: 1 3X VAG
     Route: 067
     Dates: start: 20100928, end: 20100929

REACTIONS (4)
  - VAGINAL SWELLING [None]
  - VULVOVAGINAL BURNING SENSATION [None]
  - VULVOVAGINAL PAIN [None]
  - VULVOVAGINAL PRURITUS [None]
